FAERS Safety Report 4815718-6 (Version None)
Quarter: 2005Q4

REPORT INFORMATION
  Report Type: 
  Country: None (occurrence: None)
  Receive Date: 20051026
  Receipt Date: 20051011
  Transmission Date: 20060501
  Serious: Yes (Hospitalization, Other)
  Sender: FDA-Public Use
  Company Number: USA0510110781

PATIENT
  Age: 42 Year
  Sex: Female
  Weight: 71 kg

DRUGS (2)
  1. FORTEO [Suspect]
     Indication: OSTEOPOROSIS
     Dosage: 20 UG DAY
     Dates: start: 20031213
  2. PREDNISONE [Concomitant]

REACTIONS (2)
  - FALL [None]
  - HIP FRACTURE [None]
